FAERS Safety Report 23245670 (Version 1)
Quarter: 2023Q4

REPORT INFORMATION
  Report Type: Spontaneous
  Country: HR (occurrence: HR)
  Receive Date: 20231130
  Receipt Date: 20231130
  Transmission Date: 20240109
  Serious: Yes (Death, Other)
  Sender: FDA-Public Use
  Company Number: HR-JNJFOC-20231169157

PATIENT

DRUGS (1)
  1. IMBRUVICA [Suspect]
     Active Substance: IBRUTINIB
     Indication: Chronic lymphocytic leukaemia
     Route: 048

REACTIONS (21)
  - Death [Fatal]
  - Neutropenia [Fatal]
  - Chronic lymphocytic leukaemia [Fatal]
  - Supraventricular tachycardia [Unknown]
  - Lung neoplasm malignant [Fatal]
  - Renal cancer [Fatal]
  - Subdural haematoma [Fatal]
  - Sepsis [Fatal]
  - COVID-19 [Fatal]
  - Atrial fibrillation [Fatal]
  - Gastrointestinal haemorrhage [Fatal]
  - Anaemia [Unknown]
  - Cellulitis [Unknown]
  - Hepatic lesion [Unknown]
  - Hypertension [Unknown]
  - Pneumonia [Fatal]
  - Cardiac failure [Fatal]
  - Abscess limb [Unknown]
  - Squamous cell carcinoma [Fatal]
  - Meningioma [Fatal]
  - Skin disorder [Unknown]
